FAERS Safety Report 7985706-X (Version None)
Quarter: 2011Q4

REPORT INFORMATION
  Report Type: 
  Country: None (occurrence: None)
  Receive Date: 20111216
  Receipt Date: 20111216
  Transmission Date: 20120403
  Serious: Yes (Life-Threatening, Hospitalization)
  Sender: FDA-Public Use
  Company Number: None

PATIENT
  Sex: Female
  Weight: 121.56 kg

DRUGS (3)
  1. BYETTA [Concomitant]
     Indication: WEIGHT CONTROL
     Dosage: 10
     Route: 042
     Dates: start: 20111015, end: 20111121
  2. SUDAFED 12 HOUR [Concomitant]
     Route: 048
  3. INSULIN [Suspect]
     Indication: BLOOD GLUCOSE DECREASED
     Dosage: 25 AM/ 22 PM
     Route: 042
     Dates: start: 20111015, end: 20111121

REACTIONS (4)
  - SHOCK HYPOGLYCAEMIC [None]
  - NASOPHARYNGITIS [None]
  - COMA [None]
  - CONVULSION [None]
